FAERS Safety Report 7581395-7 (Version None)
Quarter: 2011Q2

REPORT INFORMATION
  Report Type: 
  Country: None (occurrence: None)
  Receive Date: 20110629
  Receipt Date: 20110615
  Transmission Date: 20111010
  Serious: Yes (Other)
  Sender: FDA-Public Use
  Company Number: PHHY2011CA51119

PATIENT
  Sex: Female

DRUGS (9)
  1. DIURETICS [Concomitant]
  2. NORVASC [Concomitant]
     Dosage: 5 MG
  3. ALISKIREN [Suspect]
     Indication: HYPERTENSION
     Dosage: 150-300 MG
     Route: 048
     Dates: start: 20100309, end: 20100815
  4. DIOVAN [Concomitant]
     Dosage: 320 MG
  5. BISOPROLOL FUMARATE [Concomitant]
     Dosage: 5 MG
  6. BETA BLOCKING AGENTS [Concomitant]
  7. CALCIUM CHANNEL BLOCKERS [Concomitant]
  8. ANGIOTENSIN II ANTAGONISTS [Concomitant]
  9. LASIX [Concomitant]
     Dosage: 40 MG, BID

REACTIONS (3)
  - BLOOD PRESSURE INCREASED [None]
  - DEHYDRATION [None]
  - URINE ALBUMIN/CREATININE RATIO INCREASED [None]
